FAERS Safety Report 14382229 (Version 2)
Quarter: 2018Q2

REPORT INFORMATION
  Report Type: Report from Study
  Country: CA (occurrence: CA)
  Receive Date: 20180112
  Receipt Date: 20180608
  Transmission Date: 20180711
  Serious: Yes (Death, Hospitalization)
  Sender: FDA-Public Use
  Company Number: CA-HLSUS-2018-CA-000065

PATIENT
  Age: 61 Year
  Sex: Male
  Weight: 80 kg

DRUGS (4)
  1. LACTULOSE. [Concomitant]
     Active Substance: LACTULOSE
     Indication: PRODUCT USED FOR UNKNOWN INDICATION
     Dosage: 45 ML
  2. CLOZAPINE. [Suspect]
     Active Substance: CLOZAPINE
  3. MACROGOL [Concomitant]
     Active Substance: POLYETHYLENE GLYCOLS
     Indication: PRODUCT USED FOR UNKNOWN INDICATION
     Dosage: 17 GRAM
  4. PARIET [Concomitant]
     Active Substance: RABEPRAZOLE SODIUM
     Indication: PRODUCT USED FOR UNKNOWN INDICATION
     Dosage: 1.0 DOSAGE FORMS

REACTIONS (9)
  - Pallor [Fatal]
  - Haematemesis [Fatal]
  - Pneumonia [Fatal]
  - Hepatic cirrhosis [Fatal]
  - Small intestinal obstruction [Fatal]
  - Ileus [Fatal]
  - Nausea [Fatal]
  - Pneumonia aspiration [Fatal]
  - Decreased appetite [Fatal]
